FAERS Safety Report 9921580 (Version 1)
Quarter: 2014Q1

REPORT INFORMATION
  Report Type: Spontaneous
  Country: US (occurrence: None)
  Receive Date: 20140221
  Receipt Date: 20140221
  Transmission Date: 20141002
  Serious: Yes (Other)
  Sender: FDA-Public Use
  Company Number: None

PATIENT
  Sex: 0

DRUGS (1)
  1. LUNESTA [Suspect]

REACTIONS (16)
  - Aggression [None]
  - Hostility [None]
  - Impulsive behaviour [None]
  - Weight decreased [None]
  - Panic attack [None]
  - Palpitations [None]
  - Tremor [None]
  - Nausea [None]
  - Hyperhidrosis [None]
  - Dizziness [None]
  - Anxiety [None]
  - Decreased appetite [None]
  - Motion sickness [None]
  - Tachycardia [None]
  - Mania [None]
  - Drug dose omission [None]
